FAERS Safety Report 6852416-1 (Version None)
Quarter: 2010Q3

REPORT INFORMATION
  Report Type: 
  Country: None (occurrence: None)
  Receive Date: 20100717
  Receipt Date: 20071212
  Transmission Date: 20110219
  Serious: No
  Sender: FDA-Public Use
  Company Number: US-PFIZER INC-2007097146

PATIENT
  Sex: Male
  Weight: 120.45 kg

DRUGS (4)
  1. CHANTIX [Suspect]
     Indication: SMOKING CESSATION THERAPY
     Dates: start: 20071001
  2. PRAVACHOL [Concomitant]
  3. PAXIL [Concomitant]
  4. AVALIDE [Concomitant]

REACTIONS (1)
  - DRUG INEFFECTIVE [None]
